FAERS Safety Report 8560446-7 (Version None)
Quarter: 2012Q3

REPORT INFORMATION
  Report Type: 
  Country: None (occurrence: None)
  Receive Date: 20120802
  Receipt Date: 20120727
  Transmission Date: 20120928
  Serious: Yes (Other)
  Sender: FDA-Public Use
  Company Number: PHHY2012US065599

PATIENT
  Sex: Female

DRUGS (1)
  1. GENTEAL [Suspect]
     Dosage: UNK
     Route: 047

REACTIONS (2)
  - EYE INFECTION [None]
  - DACRYOSTENOSIS ACQUIRED [None]
